FAERS Safety Report 23100441 (Version 5)
Quarter: 2025Q4

REPORT INFORMATION
  Report Type: Spontaneous
  Country: US (occurrence: US)
  Receive Date: 20231024
  Receipt Date: 20251017
  Transmission Date: 20260117
  Serious: No
  Sender: PFIZER
  Company Number: US-PFIZER INC-2021606420

PATIENT
  Age: 69 Year
  Sex: Female

DRUGS (9)
  1. XELJANZ XR [Suspect]
     Active Substance: TOFACITINIB CITRATE
     Dosage: 11 MG
  2. MOTRIN [Concomitant]
     Active Substance: IBUPROFEN
     Dosage: 100 MG
  3. MOTRIN [Concomitant]
     Active Substance: IBUPROFEN
     Dosage: UNK
  4. VITAMIN C [Concomitant]
     Active Substance: ASCORBIC ACID
     Dosage: UNK
  5. VITAMIN D3 [Concomitant]
     Active Substance: CHOLECALCIFEROL
     Dosage: UNK
  6. PREDNISONE [Concomitant]
     Active Substance: PREDNISONE
     Dosage: 5 MG
  7. AMITRIPTYLINE [Concomitant]
     Active Substance: AMITRIPTYLINE
     Dosage: 100 MG
  8. RESTASIS [Concomitant]
     Active Substance: CYCLOSPORINE
     Indication: Eye disorder
     Dosage: UNK
  9. EVENITY [Concomitant]
     Active Substance: ROMOSOZUMAB-AQQG
     Dosage: UNK

REACTIONS (5)
  - Musculoskeletal disorder [Unknown]
  - Bradykinesia [Unknown]
  - Inflammation [Unknown]
  - Back pain [Unknown]
  - Urinary tract infection [Not Recovered/Not Resolved]
